FAERS Safety Report 9727457 (Version 1)
Quarter: 2013Q4

REPORT INFORMATION
  Report Type: Spontaneous
  Country: CA (occurrence: CA)
  Receive Date: 20131203
  Receipt Date: 20131203
  Transmission Date: 20140711
  Serious: Yes (Hospitalization)
  Sender: FDA-Public Use
  Company Number: CA-009507513-1311CAN013140

PATIENT
  Age: 78 Year
  Sex: Female

DRUGS (1)
  1. EZETROL [Suspect]
     Dosage: 10 MG, UNK
     Route: 048

REACTIONS (1)
  - General physical health deterioration [Unknown]
